FAERS Safety Report 7029857-5 (Version None)
Quarter: 2010Q4

REPORT INFORMATION
  Report Type: 
  Country: None (occurrence: None)
  Receive Date: 20101006
  Receipt Date: 20100929
  Transmission Date: 20110411
  Serious: No
  Sender: FDA-Public Use
  Company Number: US-BIOGENIDEC-2010BI033849

PATIENT
  Age: 31 Year
  Sex: Male

DRUGS (1)
  1. AVONEX [Suspect]
     Indication: MULTIPLE SCLEROSIS
     Route: 030
     Dates: start: 20080602

REACTIONS (7)
  - BACK PAIN [None]
  - BURNING SENSATION [None]
  - HYPOAESTHESIA [None]
  - INFLUENZA LIKE ILLNESS [None]
  - MUSCULAR WEAKNESS [None]
  - PARAESTHESIA [None]
  - WEIGHT DECREASED [None]
